FAERS Safety Report 17068469 (Version 1)
Quarter: 2019Q4

REPORT INFORMATION
  Report Type: Spontaneous
  Country: FR (occurrence: FR)
  Receive Date: 20191123
  Receipt Date: 20191123
  Transmission Date: 20200122
  Serious: Yes (Hospitalization)
  Sender: FDA-Public Use
  Company Number: FR-ACCORD-162038

PATIENT
  Age: 68 Year
  Sex: Female
  Weight: 64 kg

DRUGS (3)
  1. CALCIUM LEVOFOLINATE ZENTIVA [Concomitant]
     Active Substance: LEVOLEUCOVORIN CALCIUM
     Indication: COLORECTAL CANCER METASTATIC
     Route: 041
     Dates: start: 20191009, end: 20191009
  2. OXALIPLATIN ACCORD [Suspect]
     Active Substance: OXALIPLATIN
     Indication: COLORECTAL CANCER METASTATIC
     Dosage: STRENGTH: 5 MG / ML
     Route: 041
     Dates: start: 20191009, end: 20191009
  3. FLUOROURACIL ACCORD [Suspect]
     Active Substance: FLUOROURACIL
     Indication: COLORECTAL CANCER METASTATIC
     Dosage: STRENGTH: 50 MG/ML, RECEIVED TILL 09-OCT-2019
     Route: 042
     Dates: start: 20191009

REACTIONS (2)
  - Laryngospasm [Recovered/Resolved]
  - Neuropathy peripheral [Recovered/Resolved]

NARRATIVE: CASE EVENT DATE: 201910
